FAERS Safety Report 21734700 (Version 4)
Quarter: 2022Q4

REPORT INFORMATION
  Report Type: Spontaneous
  Country: US (occurrence: US)
  Receive Date: 20221215
  Receipt Date: 20221227
  Transmission Date: 20230113
  Serious: No
  Sender: FDA-Public Use
  Company Number: US-PFIZER INC-PV202200124420

PATIENT
  Age: 56 Year
  Sex: Male

DRUGS (1)
  1. SUTENT [Suspect]
     Active Substance: SUNITINIB MALATE
     Dosage: 25 MG, ALTERNATE DAY (TAKE 1 CAPSULE (25MG) BY MOUTH EVERY OTHER DAY WITH OR WITHOUT FOOD)
     Route: 048

REACTIONS (2)
  - Off label use [Unknown]
  - Illness [Unknown]
